FAERS Safety Report 25091186 (Version 2)
Quarter: 2025Q1

REPORT INFORMATION
  Report Type: Spontaneous
  Country: CN (occurrence: CN)
  Receive Date: 20250318
  Receipt Date: 20250326
  Transmission Date: 20250408
  Serious: Yes (Death, Other)
  Sender: AMGEN
  Company Number: CN-AMGEN-CHNSP2025047889

PATIENT
  Age: 86 Year
  Sex: Male

DRUGS (3)
  1. XGEVA [Suspect]
     Active Substance: DENOSUMAB
     Indication: Metastases to bone
     Dosage: 120 MILLIGRAM, Q4WK
     Route: 058
     Dates: start: 2022
  2. SAVOLITINIB [Suspect]
     Active Substance: SAVOLITINIB
     Indication: Product used for unknown indication
     Dosage: 400 MILLIGRAM, QD
     Route: 065
     Dates: start: 20220712
  3. SAVOLITINIB [Suspect]
     Active Substance: SAVOLITINIB
     Dosage: 300 MILLIGRAM, QD
     Route: 065
     Dates: start: 20221012

REACTIONS (3)
  - Respiratory failure [Fatal]
  - Pneumonia [Unknown]
  - Oedema peripheral [Unknown]

NARRATIVE: CASE EVENT DATE: 20220101
